FAERS Safety Report 6253879-5 (Version None)
Quarter: 2009Q3

REPORT INFORMATION
  Report Type: 
  Country: None (occurrence: None)
  Receive Date: 20090702
  Receipt Date: 20090624
  Transmission Date: 20100115
  Serious: Yes (Other)
  Sender: FDA-Public Use
  Company Number: PHHY2009CA14610

PATIENT
  Sex: Female

DRUGS (8)
  1. EXELON [Suspect]
     Indication: DEMENTIA
     Dosage: 5 MG
     Route: 062
     Dates: start: 20081014
  2. EXELON [Suspect]
     Dosage: 9.5 MG/24 H
     Route: 062
     Dates: end: 20090421
  3. CALCIUM [Concomitant]
     Dosage: 500 MG, BID
  4. LIPITOR [Concomitant]
     Dosage: 10 MG, QD
  5. VITAMIN D [Concomitant]
     Dosage: 800 IU, QD
  6. VITAMIN B-12 [Concomitant]
     Dosage: 1200 UG, QD
  7. ASPIRIN [Concomitant]
     Dosage: 81 MG, QD
  8. CITALOPRAM HYDROBROMIDE [Concomitant]
     Dosage: 30 G, QD

REACTIONS (3)
  - APPLICATION SITE ERYTHEMA [None]
  - APPLICATION SITE SWELLING [None]
  - SKIN IRRITATION [None]
